FAERS Safety Report 5866983-8 (Version None)
Quarter: 2008Q3

REPORT INFORMATION
  Report Type: 
  Country: None (occurrence: None)
  Receive Date: 20080902
  Receipt Date: 20080822
  Transmission Date: 20090109
  Serious: Yes (Hospitalization)
  Sender: FDA-Public Use
  Company Number: A0690184A

PATIENT
  Age: 49 Year
  Sex: Male
  Weight: 113.6 kg

DRUGS (15)
  1. AVANDIA [Suspect]
     Dosage: 4MG TWICE PER DAY
     Route: 048
  2. METHOCARBAMOL [Concomitant]
  3. TRAMADOL HCL [Concomitant]
  4. DILAUDID [Concomitant]
  5. TOPAMAX [Concomitant]
  6. NABUMETONE [Concomitant]
  7. OXYCONTIN [Concomitant]
  8. ROBAXIN [Concomitant]
  9. GLIPIZIDE [Concomitant]
  10. NOVOLIN 70/30 [Concomitant]
  11. LOTENSIN [Concomitant]
  12. PREVACID [Concomitant]
  13. PROZAC [Concomitant]
  14. LORAZEPAM [Concomitant]
  15. AMBIEN [Concomitant]

REACTIONS (6)
  - ACTIVITIES OF DAILY LIVING IMPAIRED [None]
  - DECREASED ACTIVITY [None]
  - DEPRESSION [None]
  - INJURY [None]
  - MYOCARDIAL INFARCTION [None]
  - PAIN [None]
